FAERS Safety Report 10068083 (Version 1)
Quarter: 2014Q2

REPORT INFORMATION
  Report Type: Spontaneous
  Country: US (occurrence: US)
  Receive Date: 20140409
  Receipt Date: 20140409
  Transmission Date: 20141212
  Serious: Yes (Hospitalization)
  Sender: FDA-Public Use
  Company Number: US-JNJFOC-20140402022

PATIENT
  Age: 27 Year
  Sex: Male

DRUGS (3)
  1. INVEGA SUSTENNA [Suspect]
     Indication: SCHIZOPHRENIA
     Route: 030
  2. INVEGA [Suspect]
     Indication: SCHIZOPHRENIA
     Route: 048
  3. INSULIN [Concomitant]
     Indication: DIABETES MELLITUS
     Route: 058

REACTIONS (2)
  - Diabetic ketoacidosis [Unknown]
  - Pancreatitis [Not Recovered/Not Resolved]
